FAERS Safety Report 15735897 (Version 1)
Quarter: 2018Q4

REPORT INFORMATION
  Report Type: Spontaneous
  Country: US (occurrence: US)
  Receive Date: 20181218
  Receipt Date: 20181218
  Transmission Date: 20190205
  Serious: Yes (Other)
  Sender: FDA-Public Use
  Company Number: PHHY2018US184369

PATIENT
  Age: 49 Year
  Sex: Male

DRUGS (3)
  1. MYCOPHENOLATE MOFETIL. [Suspect]
     Active Substance: MYCOPHENOLATE MOFETIL
     Indication: UVEITIS
     Dosage: UNK
     Route: 065
  2. MYCOPHENOLATE MOFETIL. [Suspect]
     Active Substance: MYCOPHENOLATE MOFETIL
     Indication: SCLERITIS
  3. ADALIMUMAB [Concomitant]
     Active Substance: ADALIMUMAB
     Indication: UVEITIS
     Dosage: 40 MG, QOD
     Route: 065

REACTIONS (4)
  - Product use in unapproved indication [Unknown]
  - Macular oedema [Unknown]
  - Disease recurrence [Unknown]
  - Scleritis [Unknown]
